FAERS Safety Report 17396762 (Version 1)
Quarter: 2020Q1

REPORT INFORMATION
  Report Type: Spontaneous
  Country: US (occurrence: US)
  Receive Date: 20200210
  Receipt Date: 20200210
  Transmission Date: 20200409
  Serious: No
  Sender: FDA-Public Use
  Company Number: US-PFIZER INC-2018455322

PATIENT
  Age: 50 Year
  Sex: Male
  Weight: 90.72 kg

DRUGS (2)
  1. VFEND [Suspect]
     Active Substance: VORICONAZOLE
     Dosage: 600 MG, 1X/DAY (3 TABS, ONCE A DAY)
     Route: 048
     Dates: start: 2014
  2. VFEND [Suspect]
     Active Substance: VORICONAZOLE
     Indication: MENINGITIS
     Dosage: 200 MG, 3X/DAY
     Route: 048
     Dates: start: 2013

REACTIONS (4)
  - Off label use [Unknown]
  - Product dispensing error [Unknown]
  - Rash [Unknown]
  - Product use issue [Unknown]

NARRATIVE: CASE EVENT DATE: 2013
